FAERS Safety Report 19099035 (Version 4)
Quarter: 2021Q3

REPORT INFORMATION
  Report Type: Report from Study
  Country: CA (occurrence: CA)
  Receive Date: 20210406
  Receipt Date: 20210910
  Transmission Date: 20211014
  Serious: Yes (Death, Life-Threatening, Hospitalization)
  Sender: FDA-Public Use
  Company Number: CA-ROCHE-2797181

PATIENT
  Age: 71 Year
  Sex: Male
  Weight: 74.2 kg

DRUGS (18)
  1. CEFTRIAXONE SODIUM. [Concomitant]
     Active Substance: CEFTRIAXONE SODIUM
     Route: 042
     Dates: start: 20210322, end: 20210327
  2. PANTOPRAZOLE EG [Concomitant]
     Active Substance: PANTOPRAZOLE SODIUM
     Route: 048
     Dates: start: 20210325
  3. SENOKOT [Concomitant]
     Active Substance: SENNOSIDES
     Indication: CONSTIPATION
     Route: 048
     Dates: start: 20201019
  4. DALTEPARIN [Concomitant]
     Active Substance: DALTEPARIN
     Dosage: 5000 U (UNIT)
     Route: 058
     Dates: start: 20210325
  5. NORVASC [Concomitant]
     Active Substance: AMLODIPINE BESYLATE
     Indication: HYPERTENSION
     Route: 048
     Dates: start: 20201231, end: 20210321
  6. MELATONIN [Concomitant]
     Active Substance: MELATONIN
     Route: 048
     Dates: start: 20210328
  7. COBIMETINIB. [Suspect]
     Active Substance: COBIMETINIB
     Indication: NON-SMALL CELL LUNG CANCER METASTATIC
     Dosage: 17/MAR/2021, MOST RECENT DOSE PRIOR TO SAE ONSET
     Route: 048
     Dates: start: 20201007
  8. CLAVULIN [Concomitant]
     Active Substance: AMOXICILLIN\CLAVULANATE POTASSIUM
     Indication: DYSPNOEA
     Route: 048
     Dates: start: 20210316, end: 20210316
  9. CEFTRIAXONE SODIUM. [Concomitant]
     Active Substance: CEFTRIAXONE SODIUM
     Indication: HYPOXIA
     Route: 042
     Dates: start: 20210321, end: 20210321
  10. ATENOLOL. [Concomitant]
     Active Substance: ATENOLOL
     Indication: HYPERTHYROIDISM
     Route: 048
     Dates: start: 20201230, end: 20210321
  11. AMLODIPINE [Concomitant]
     Active Substance: AMLODIPINE BESYLATE
     Indication: HYPERTENSION
     Route: 048
     Dates: start: 20210330
  12. ATEZOLIZUMAB. [Suspect]
     Active Substance: ATEZOLIZUMAB
     Indication: NON-SMALL CELL LUNG CANCER METASTATIC
     Dosage: 25/FEB/2021, ADMINISTERED PRIOR TO AE OR SAE ONSET
     Route: 041
     Dates: start: 20201105
  13. VEMURAFENIB. [Suspect]
     Active Substance: VEMURAFENIB
     Indication: NON-SMALL CELL LUNG CANCER METASTATIC
     Dosage: 20/MAR/2021, MOST RECENT DOSE (720 MG) PRIOR TO SAE ONSET
     Route: 048
     Dates: start: 20201007
  14. ATENOLOL. [Concomitant]
     Active Substance: ATENOLOL
     Route: 048
     Dates: start: 20210330
  15. IMODIUM [Concomitant]
     Active Substance: LOPERAMIDE HYDROCHLORIDE
     Indication: DIARRHOEA
     Route: 048
     Dates: start: 20210318, end: 20210318
  16. DALTEPARIN [Concomitant]
     Active Substance: DALTEPARIN
     Indication: THROMBOSIS PROPHYLAXIS
     Route: 058
     Dates: start: 20210322, end: 20210323
  17. AZITHROMYCIN ANHYDROUS. [Concomitant]
     Active Substance: AZITHROMYCIN ANHYDROUS
     Indication: HYPOXIA
     Route: 042
     Dates: start: 20210321, end: 20210321
  18. OXYGEN. [Concomitant]
     Active Substance: OXYGEN

REACTIONS (2)
  - Pneumonia [Fatal]
  - Pneumonitis [Not Recovered/Not Resolved]

NARRATIVE: CASE EVENT DATE: 20210322
